FAERS Safety Report 5862819-X (Version None)
Quarter: 2008Q3

REPORT INFORMATION
  Report Type: 
  Country: None (occurrence: None)
  Receive Date: 20080828
  Receipt Date: 20080821
  Transmission Date: 20090109
  Serious: Yes (Congenital Anomaly)
  Sender: FDA-Public Use
  Company Number: A0681066A

PATIENT
  Sex: Female

DRUGS (4)
  1. PAXIL [Suspect]
     Indication: ANXIETY
     Dosage: 20MG PER DAY
     Dates: start: 19950701
  2. PAROXETINE HCL [Suspect]
     Indication: ANXIETY
     Dates: start: 19950701
  3. VITAMIN TAB [Concomitant]
     Dates: start: 19960101
  4. TYLENOL (CAPLET) [Concomitant]

REACTIONS (12)
  - ANGER [None]
  - ANXIETY [None]
  - BRONCHIAL HYPERREACTIVITY [None]
  - CONGENITAL CARDIOVASCULAR ANOMALY [None]
  - DRUG EXPOSURE DURING PREGNANCY [None]
  - FAILURE TO THRIVE [None]
  - FALLOT'S TETRALOGY [None]
  - FEAR [None]
  - FEAR OF DEATH [None]
  - HYPOTHYROIDISM [None]
  - PATENT DUCTUS ARTERIOSUS [None]
  - VENTRICULAR SEPTAL DEFECT [None]
